FAERS Safety Report 9231693 (Version 1)
Quarter: 2013Q2

REPORT INFORMATION
  Report Type: Spontaneous
  Country: US (occurrence: US)
  Receive Date: 20130415
  Receipt Date: 20130415
  Transmission Date: 20140414
  Serious: Yes (Other)
  Sender: FDA-Public Use
  Company Number: US-ROCHE-1214176

PATIENT
  Age: 65 Year
  Sex: Male

DRUGS (4)
  1. PEGASYS [Suspect]
     Indication: CHRONIC HEPATITIS C
     Route: 058
     Dates: start: 20130303
  2. PEGASYS [Suspect]
     Route: 065
     Dates: start: 2011
  3. RIBAVIRIN [Suspect]
     Indication: CHRONIC HEPATITIS C
     Dosage: IN DIVIDED DOSES
     Route: 048
     Dates: start: 20130303
  4. RIBAVIRIN [Suspect]
     Route: 065
     Dates: start: 2011

REACTIONS (1)
  - Liver transplant [Unknown]
